FAERS Safety Report 10038012 (Version 1)
Quarter: 2014Q1

REPORT INFORMATION
  Report Type: Report from Study
  Country: DE (occurrence: DE)
  Receive Date: 20140326
  Receipt Date: 20140326
  Transmission Date: 20141002
  Serious: Yes (Hospitalization)
  Sender: FDA-Public Use
  Company Number: PHHO2014DE004155

PATIENT
  Sex: 0

DRUGS (6)
  1. SANDIMMUN [Suspect]
     Indication: PROPHYLAXIS AGAINST GRAFT VERSUS HOST DISEASE
     Dosage: UNK
     Dates: start: 20130502
  2. RAMIPRIL [Suspect]
     Dosage: 2.5 MG, BID
     Route: 048
     Dates: start: 20130508, end: 20130520
  3. RAMIPRIL [Suspect]
     Dosage: 2.5 MG, QD
     Route: 048
     Dates: start: 20130521, end: 20130521
  4. RAMIPRIL [Suspect]
     Dosage: 5 MG, QD
     Route: 048
     Dates: start: 20130522
  5. CELLCEPT [Suspect]
     Indication: STEM CELL TRANSPLANT
  6. FLUCONAZOL [Concomitant]
     Indication: PROPHYLAXIS
     Dosage: 200 MG, BID
     Route: 048
     Dates: start: 20130430

REACTIONS (6)
  - Alopecia [Recovered/Resolved]
  - Nervous system disorder [Recovered/Resolved]
  - Endocrine disorder [Recovered/Resolved]
  - Chest pain [Recovered/Resolved]
  - Herpes zoster [Recovered/Resolved]
  - Renal failure [Recovered/Resolved]
